FAERS Safety Report 25102837 (Version 6)
Quarter: 2025Q2

REPORT INFORMATION
  Report Type: Report from Study
  Country: CO (occurrence: CO)
  Receive Date: 20250321
  Receipt Date: 20250529
  Transmission Date: 20250716
  Serious: Yes (Death, Hospitalization, Other)
  Sender: ABBVIE
  Company Number: CO-ABBVIE-6186442

PATIENT
  Age: 75 Year
  Sex: Female
  Weight: 42 kg

DRUGS (12)
  1. VENETOCLAX [Suspect]
     Active Substance: VENETOCLAX
     Indication: Acute myeloid leukaemia
     Dosage: DAY 1 TO 28.
     Route: 048
     Dates: start: 20250226, end: 20250319
  2. VENETOCLAX [Suspect]
     Active Substance: VENETOCLAX
     Indication: Acute myeloid leukaemia
     Route: 048
     Dates: start: 20250330, end: 20250428
  3. AZACITIDINE [Suspect]
     Active Substance: AZACITIDINE
     Indication: Acute myeloid leukaemia
     Dosage: FROM DAY 1 TO 7
     Route: 058
     Dates: start: 20250226, end: 20250319
  4. LEVOTHYROXINE [Concomitant]
     Active Substance: LEVOTHYROXINE
     Indication: Hypothyroidism
     Route: 048
     Dates: start: 1974
  5. TELMISARTAN [Concomitant]
     Active Substance: TELMISARTAN
     Indication: Hypertension
     Route: 048
     Dates: start: 202306
  6. DULOXETINE [Concomitant]
     Active Substance: DULOXETINE
     Indication: Breast cancer
     Route: 048
     Dates: start: 202409
  7. COLCHICINE [Concomitant]
     Active Substance: COLCHICINE
     Indication: Morphoea
     Route: 048
     Dates: start: 2013
  8. LETROZOLE [Concomitant]
     Active Substance: LETROZOLE
     Indication: Breast cancer
     Route: 048
     Dates: start: 20240201
  9. AMLODIPINE [Concomitant]
     Active Substance: AMLODIPINE BESYLATE
     Indication: Hypertension
     Route: 048
     Dates: start: 20241018
  10. VORICONAZOLE [Concomitant]
     Active Substance: VORICONAZOLE
     Indication: Product used for unknown indication
     Route: 048
     Dates: start: 20250104
  11. CYTARABINE [Concomitant]
     Active Substance: CYTARABINE
     Indication: Leukaemia recurrent
     Route: 058
  12. ONDANSETRON [Concomitant]
     Active Substance: ONDANSETRON
     Indication: Chemotherapy side effect prophylaxis
     Route: 042
     Dates: start: 20250329

REACTIONS (9)
  - Micturition disorder [Fatal]
  - Urinary tract disorder [Not Recovered/Not Resolved]
  - Febrile neutropenia [Not Recovered/Not Resolved]
  - Cystitis haemorrhagic [Recovered/Resolved with Sequelae]
  - Bartholin^s abscess [Unknown]
  - Anal cancer [Unknown]
  - Thrombocytopenia [Recovered/Resolved with Sequelae]
  - Urinary tract infection bacterial [Recovered/Resolved with Sequelae]
  - Vulval cellulitis [Unknown]

NARRATIVE: CASE EVENT DATE: 20250316
